FAERS Safety Report 15983755 (Version 2)
Quarter: 2019Q1

REPORT INFORMATION
  Report Type: Spontaneous
  Country: FR (occurrence: FR)
  Receive Date: 20190220
  Receipt Date: 20190227
  Transmission Date: 20190418
  Serious: Yes (Hospitalization)
  Sender: FDA-Public Use
  Company Number: FR-TEVA-2019-FR-1013791

PATIENT
  Age: 83 Year
  Sex: Male
  Weight: 165 kg

DRUGS (6)
  1. BISOCE [Concomitant]
     Active Substance: BISOPROLOL
  2. INEXIUM [Suspect]
     Active Substance: ESOMEPRAZOLE
     Indication: PROPHYLAXIS AGAINST GASTROINTESTINAL ULCER
     Dosage: 20 MILLIGRAM DAILY;
     Route: 048
     Dates: start: 201812, end: 20190124
  3. RAMIPRIL. [Concomitant]
     Active Substance: RAMIPRIL
  4. ACIDE ACETYLSALICYLIQUE [Concomitant]
     Active Substance: ASPIRIN
  5. CLOPIDOGREL [Suspect]
     Active Substance: CLOPIDOGREL BISULFATE
     Indication: CORONARY ARTERIAL STENT INSERTION
     Dosage: 75 MILLIGRAM DAILY;
     Route: 048
     Dates: start: 201812
  6. TAHOR [Concomitant]
     Active Substance: ATORVASTATIN CALCIUM

REACTIONS (3)
  - Erythema [Recovered/Resolved]
  - Hepatitis [Not Recovered/Not Resolved]
  - Eosinophil count increased [Recovered/Resolved]

NARRATIVE: CASE EVENT DATE: 20190114
